FAERS Safety Report 10069356 (Version 1)
Quarter: 2014Q2

REPORT INFORMATION
  Report Type: Spontaneous
  Country: IT (occurrence: IT)
  Receive Date: 20140410
  Receipt Date: 20140410
  Transmission Date: 20141212
  Serious: Yes (Hospitalization)
  Sender: FDA-Public Use
  Company Number: IT-ROCHE-1376490

PATIENT
  Age: 43 Year
  Sex: Male

DRUGS (4)
  1. PEGASYS [Suspect]
     Indication: HEPATIC CIRRHOSIS
     Route: 058
     Dates: start: 20131028, end: 20140114
  2. REBETOL [Suspect]
     Indication: HEPATIC CIRRHOSIS
     Route: 048
     Dates: start: 20131028, end: 20140114
  3. VICTRELIS [Suspect]
     Indication: HEPATIC CIRRHOSIS
     Route: 048
     Dates: start: 20131125, end: 20140114
  4. VICTRELIS [Suspect]
     Route: 048
     Dates: start: 20131125, end: 20140114

REACTIONS (1)
  - Febrile neutropenia [Recovered/Resolved]
